FAERS Safety Report 17097444 (Version 1)
Quarter: 2019Q4

REPORT INFORMATION
  Report Type: Spontaneous
  Country: US (occurrence: US)
  Receive Date: 20191105
  Receipt Date: 20191105
  Transmission Date: 20200122
  Serious: Yes (Hospitalization)
  Sender: FDA-Public Use
  Company Number: None

PATIENT
  Age: 14 Year
  Sex: Female

DRUGS (1)
  1. BOSENTAN 62.5MG ROXANE [Suspect]
     Active Substance: BOSENTAN
     Route: 048
     Dates: start: 20161230

REACTIONS (1)
  - Menorrhagia [None]

NARRATIVE: CASE EVENT DATE: 201910
